FAERS Safety Report 4445437-X (Version None)
Quarter: 2004Q3

REPORT INFORMATION
  Report Type: 
  Country: None (occurrence: None)
  Receive Date: 20040802
  Receipt Date: 20040426
  Transmission Date: 20050211
  Serious: No
  Sender: FDA-Public Use
  Company Number: 2004-116169-NL

PATIENT
  Age: 46 Year
  Sex: Female
  Weight: 56.8 kg

DRUGS (2)
  1. NUVARING [Suspect]
     Indication: CONTRACEPTION
     Dosage: DF DAILY VAGINAL
     Route: 067
     Dates: start: 20040408
  2. NUVARING [Suspect]
     Indication: UTERINE LEIOMYOMA
     Dosage: DF DAILY VAGINAL
     Route: 067
     Dates: start: 20040408

REACTIONS (5)
  - GENITAL PRURITUS FEMALE [None]
  - OEDEMA GENITAL [None]
  - VAGINAL BURNING SENSATION [None]
  - VULVAL DISORDER [None]
  - VULVOVAGINAL DISCOMFORT [None]
